FAERS Safety Report 18664288 (Version 3)
Quarter: 2021Q1

REPORT INFORMATION
  Report Type: Spontaneous
  Country: GB (occurrence: GB)
  Receive Date: 20201225
  Receipt Date: 20210225
  Transmission Date: 20210419
  Serious: Yes (Other)
  Sender: FDA-Public Use
  Company Number: GB-BIOVITRUM-2020GB7882

PATIENT
  Age: 67 Year
  Sex: Male

DRUGS (14)
  1. CITALOPRAM [Concomitant]
     Active Substance: CITALOPRAM HYDROBROMIDE
  2. ATORVASTATIN [Concomitant]
     Active Substance: ATORVASTATIN
  3. SERTRALINE [Concomitant]
     Active Substance: SERTRALINE HYDROCHLORIDE
  4. METFORMIN [Concomitant]
     Active Substance: METFORMIN HYDROCHLORIDE
  5. PIROXICAM. [Concomitant]
     Active Substance: PIROXICAM
     Dosage: 0.5 % GEL
  6. VITAMIN D3 [Concomitant]
     Active Substance: CHOLECALCIFEROL
  7. ASPRIN [Concomitant]
     Active Substance: ASPIRIN
  8. BISOPROLOL [Concomitant]
     Active Substance: BISOPROLOL
  9. GABAPENTIN. [Concomitant]
     Active Substance: GABAPENTIN
  10. OMPRAZOLE [Concomitant]
     Active Substance: OMEPRAZOLE
  11. ORFADIN [Suspect]
     Active Substance: NITISINONE
     Indication: ALKAPTONURIA
     Dates: start: 2017
  12. SERTRALINE [Concomitant]
     Active Substance: SERTRALINE HYDROCHLORIDE
  13. RAMIPRIL. [Concomitant]
     Active Substance: RAMIPRIL
  14. FERROUS FUMURATE [Concomitant]

REACTIONS (3)
  - Lenticular opacities [Not Recovered/Not Resolved]
  - Cataract [Not Recovered/Not Resolved]
  - Amino acid level increased [Not Recovered/Not Resolved]
